FAERS Safety Report 4393736-2 (Version None)
Quarter: 2004Q3

REPORT INFORMATION
  Report Type: 
  Country: None (occurrence: None)
  Receive Date: 20040709
  Receipt Date: 20040628
  Transmission Date: 20050211
  Serious: Yes (Life-Threatening, Hospitalization, Other)
  Sender: FDA-Public Use
  Company Number: GB-GLAXOSMITHKLINE-B0337124A

PATIENT
  Age: 75 Year
  Sex: Male

DRUGS (14)
  1. LITHIUM [Suspect]
     Indication: BIPOLAR DISORDER
     Dosage: 400MG PER DAY
     Route: 048
     Dates: start: 19740501
  2. FLUVASTATIN [Concomitant]
     Route: 065
  3. FUROSEMIDE [Concomitant]
     Dosage: 40MG MONTHLY
     Route: 048
  4. ASPIRIN [Concomitant]
     Dosage: 75MG PER DAY
     Route: 048
  5. ATENOLOL [Concomitant]
     Dosage: 50MG PER DAY
     Route: 048
  6. AMLODIPINE [Concomitant]
     Dosage: 10MG PER DAY
     Route: 048
  7. ISOSORBIDE MONONITRATE [Concomitant]
     Dosage: 90MG PER DAY
     Route: 048
  8. THYROXINE [Concomitant]
     Dosage: 50MCG PER DAY
     Route: 048
  9. OMEPRAZOLE [Concomitant]
     Dosage: 40MG PER DAY
     Route: 048
  10. MEBEVERINE [Concomitant]
     Route: 048
  11. FYBOGEL [Concomitant]
     Route: 065
  12. SENNA [Concomitant]
     Route: 065
  13. GASTROCOTE [Concomitant]
     Route: 065
  14. NITRAZEPAM [Concomitant]
     Dosage: 5MG AS REQUIRED
     Route: 048

REACTIONS (6)
  - ANOREXIA [None]
  - CONSTIPATION [None]
  - DYSPNOEA [None]
  - HYPOTHYROIDISM [None]
  - RENAL IMPAIRMENT [None]
  - THERAPEUTIC AGENT TOXICITY [None]
